FAERS Safety Report 5360705-5 (Version None)
Quarter: 2007Q2

REPORT INFORMATION
  Report Type: 
  Country: None (occurrence: None)
  Receive Date: 20070614
  Receipt Date: 20070606
  Transmission Date: 20071010
  Serious: Yes (Life-Threatening, Other)
  Sender: FDA-Public Use
  Company Number: 07H-163-0312706-00

PATIENT
  Age: 27 Year
  Sex: Female

DRUGS (2)
  1. ETOMIDATE [Suspect]
     Indication: INDUCTION OF ANAESTHESIA
     Dosage: 10 MG, INTRAVENOUS
     Route: 042
  2. 100% OXYGEN (OXYGEN) [Concomitant]

REACTIONS (2)
  - MYOCLONUS [None]
  - VENTRICULAR TACHYCARDIA [None]
